FAERS Safety Report 24740833 (Version 1)
Quarter: 2024Q4

REPORT INFORMATION
  Report Type: Spontaneous
  Country: US (occurrence: US)
  Receive Date: 20241217
  Receipt Date: 20241217
  Transmission Date: 20250115
  Serious: Yes (Other)
  Sender: AMGEN
  Company Number: US-AMGEN-USASP2024244081

PATIENT

DRUGS (9)
  1. FILGRASTIM [Suspect]
     Active Substance: FILGRASTIM
     Indication: Aplastic anaemia
     Dosage: UNK (FOR UP TO 3 MONTHS)
     Route: 058
  2. PEGFILGRASTIM [Suspect]
     Active Substance: PEGFILGRASTIM
     Indication: Aplastic anaemia
     Dosage: UNK (FOR UP TO 3 MONTHS)
     Route: 058
  3. PREDNISONE [Suspect]
     Active Substance: PREDNISONE
     Indication: Aplastic anaemia
     Dosage: UNK (TAPERED OFF OVER 1 MONTH)
     Route: 048
  4. THYMOCYTE IMMUNE GLOBULIN NOS [Suspect]
     Active Substance: THYMOCYTE IMMUNE GLOBULIN NOS
     Indication: Aplastic anaemia
     Dosage: 40 MILLIGRAM/KILOGRAM, QD (FOR 4 DAYS)
     Route: 040
  5. THYMOCYTE IMMUNE GLOBULIN NOS [Suspect]
     Active Substance: THYMOCYTE IMMUNE GLOBULIN NOS
     Dosage: 35 MILLIGRAM/KILOGRAM, QD (FOR 4 DAYS)
     Route: 040
  6. METHYLPREDNISOLONE [Suspect]
     Active Substance: METHYLPREDNISOLONE
     Indication: Aplastic anaemia
     Dosage: 1 MILLIGRAM/KILOGRAM, QD (FOR 5 DAYS) (PRIOR TO EACH DOSE OF ATG)
     Route: 040
  7. CYCLOSPORINE [Suspect]
     Active Substance: CYCLOSPORINE
     Indication: Aplastic anaemia
     Dosage: 5 MILLIGRAM/KILOGRAM, QD (FOR UP TO 6 MONTHS)
     Route: 065
  8. ELTROMBOPAG [Suspect]
     Active Substance: ELTROMBOPAG
     Indication: Aplastic anaemia
     Dosage: 50 MILLIGRAM, QD [WITH INCREASE BY 25MG EVERY TWO (Q2) WEEKS]
     Route: 048
  9. ELTROMBOPAG [Suspect]
     Active Substance: ELTROMBOPAG
     Dosage: 150 MILLIGRAM, QD
     Route: 048

REACTIONS (9)
  - Haemorrhage intracranial [Unknown]
  - Serum sickness [Unknown]
  - Infection [Unknown]
  - Transaminases increased [Unknown]
  - Musculoskeletal pain [Unknown]
  - Fatigue [Unknown]
  - Chest pain [Unknown]
  - Headache [Unknown]
  - Hypersensitivity [Unknown]
